FAERS Safety Report 19796931 (Version 1)
Quarter: 2021Q3

REPORT INFORMATION
  Report Type: Spontaneous
  Country: US (occurrence: US)
  Receive Date: 20210905
  Receipt Date: 20210905
  Transmission Date: 20211014
  Serious: Yes (Other)
  Sender: FDA-Public Use
  Company Number: None

PATIENT
  Age: 67 Year
  Sex: Female
  Weight: 86.85 kg

DRUGS (15)
  1. BABY ASPIRIN [Concomitant]
     Active Substance: ASPIRIN
  2. ADVIL [Concomitant]
     Active Substance: IBUPROFEN
  3. MODAFINIL. [Concomitant]
     Active Substance: MODAFINIL
  4. PANTOPRAZOLE [Concomitant]
     Active Substance: PANTOPRAZOLE
  5. POTASSIUM [Concomitant]
     Active Substance: POTASSIUM
  6. COPAXONE [Suspect]
     Active Substance: GLATIRAMER ACETATE
     Indication: MULTIPLE SCLEROSIS
     Dosage: QUANTITY:1 INJECTION(S);OTHER FREQUENCY:3X WEEKLY INJECTIO;?
     Route: 058
     Dates: start: 20010215, end: 20210901
  7. EPIPEN [Concomitant]
     Active Substance: EPINEPHRINE
  8. MAGNESIUM [Concomitant]
     Active Substance: MAGNESIUM
  9. FLONASE [Concomitant]
     Active Substance: FLUTICASONE PROPIONATE
  10. GABAPENTIN. [Concomitant]
     Active Substance: GABAPENTIN
  11. HYDROCHLOROTHIAZIDE. [Concomitant]
     Active Substance: HYDROCHLOROTHIAZIDE
  12. \INHAER (QVAR) [Concomitant]
  13. CRESTOR [Concomitant]
     Active Substance: ROSUVASTATIN CALCIUM
  14. LISINOPRIL. [Concomitant]
     Active Substance: LISINOPRIL
  15. VIT D [Concomitant]
     Active Substance: VITAMIN D NOS

REACTIONS (33)
  - Product formulation issue [None]
  - Muscle rigidity [None]
  - Asthenia [None]
  - Dysphonia [None]
  - Vocal cord dysfunction [None]
  - Memory impairment [None]
  - Cognitive disorder [None]
  - Fear [None]
  - Skin injury [None]
  - Injection site induration [None]
  - Grimacing [None]
  - Tinnitus [None]
  - Anxiety [None]
  - Injection site erythema [None]
  - Dysgeusia [None]
  - Scar [None]
  - Injection site swelling [None]
  - Injection site pruritus [None]
  - Muscle spasms [None]
  - Balance disorder [None]
  - Pain [None]
  - Drug ineffective [None]
  - Injection site mass [None]
  - Taste disorder [None]
  - Product substitution issue [None]
  - Manufacturing process control procedure issue [None]
  - Erythema [None]
  - Muscle tightness [None]
  - Coordination abnormal [None]
  - Speech disorder [None]
  - Sensory disturbance [None]
  - Injection site injury [None]
  - Impaired healing [None]

NARRATIVE: CASE EVENT DATE: 20210831
